FAERS Safety Report 13798526 (Version 1)
Quarter: 2017Q3

REPORT INFORMATION
  Report Type: Spontaneous
  Country: US (occurrence: US)
  Receive Date: 20170727
  Receipt Date: 20170727
  Transmission Date: 20171127
  Serious: No
  Sender: FDA-Public Use
  Company Number: GXBR2017US001127

PATIENT
  Age: 41 Year
  Sex: Female

DRUGS (1)
  1. CHOLESTYRAMINE FOR ORAL SUSPENSION USP [Suspect]
     Active Substance: CHOLESTYRAMINE
     Indication: POST PROCEDURAL DIARRHOEA
     Dosage: 4 G, QD
     Route: 048
     Dates: start: 20161128, end: 20170321

REACTIONS (6)
  - Product use in unapproved indication [Recovered/Resolved]
  - Frequent bowel movements [Recovered/Resolved]
  - Dizziness [Recovered/Resolved]
  - Defaecation urgency [Recovered/Resolved]
  - Abdominal discomfort [Recovered/Resolved]
  - Abdominal distension [Recovered/Resolved]

NARRATIVE: CASE EVENT DATE: 20161128
